FAERS Safety Report 8428908-0 (Version None)
Quarter: 2012Q2

REPORT INFORMATION
  Report Type: 
  Country: None (occurrence: None)
  Receive Date: 20120612
  Receipt Date: 20120523
  Transmission Date: 20120825
  Serious: Yes (Other)
  Sender: FDA-Public Use
  Company Number: US-BAYER-2012-052692

PATIENT
  Age: 54 Year
  Sex: Female
  Weight: 89.342 kg

DRUGS (15)
  1. ROFLUMILAST [Concomitant]
  2. FUROSEMIDE [Concomitant]
  3. NIASPAN [Concomitant]
  4. ASPIRIN [Suspect]
     Indication: HEADACHE
     Dosage: 100 MG, ONCE
     Route: 048
     Dates: start: 20120501, end: 20120501
  5. POTASSIUM [Concomitant]
  6. FORMOTEROL FUMARATE [Concomitant]
  7. BUDESONIDE [Concomitant]
  8. SERTRALINE HYDROCHLORIDE [Concomitant]
  9. MULTIVITAMIN PREPARATION + MINERAL SUPPLEMENT [Concomitant]
  10. THEOPHYLLINE [Concomitant]
  11. CRESTOR [Concomitant]
  12. LOSARTAN [Concomitant]
  13. JANUMET [Concomitant]
  14. WELCHOL [Concomitant]
  15. FISH OIL [Concomitant]

REACTIONS (1)
  - DYSPNOEA [None]
